FAERS Safety Report 12365145 (Version 4)
Quarter: 2016Q2

REPORT INFORMATION
  Report Type: Spontaneous
  Country: AT (occurrence: AT)
  Receive Date: 20160513
  Receipt Date: 20160629
  Transmission Date: 20160815
  Serious: Yes (Other)
  Sender: FDA-Public Use
  Company Number: AT-ASTRAZENECA-2016SE49047

PATIENT
  Age: 70 Year
  Sex: Female
  Weight: 57 kg

DRUGS (3)
  1. IRESSA [Suspect]
     Active Substance: GEFITINIB
     Route: 048
     Dates: start: 20140127, end: 20151023
  2. TAGRISSO [Suspect]
     Active Substance: OSIMERTINIB
     Indication: TYROSINE KINASE MUTATION
     Dosage: 80.0MG UNKNOWN
     Route: 048
     Dates: start: 20151024
  3. DENOSUMAB [Concomitant]
     Active Substance: DENOSUMAB
     Indication: BONE DISORDER
     Dosage: 120.0MG UNKNOWN
     Route: 058
     Dates: start: 20140120

REACTIONS (10)
  - Blood alkaline phosphatase increased [Recovered/Resolved]
  - Metastases to lung [Unknown]
  - Spinal pain [Recovering/Resolving]
  - Metastases to spine [Unknown]
  - Pleural effusion [Unknown]
  - Muscular weakness [Unknown]
  - Disease progression [Unknown]
  - Erythema [Recovered/Resolved]
  - Transaminases increased [Recovered/Resolved]
  - General physical health deterioration [Unknown]

NARRATIVE: CASE EVENT DATE: 201402
